FAERS Safety Report 13090795 (Version 1)
Quarter: 2017Q1

REPORT INFORMATION
  Report Type: Spontaneous
  Country: FR (occurrence: FR)
  Receive Date: 20170106
  Receipt Date: 20170106
  Transmission Date: 20170428
  Serious: Yes (Hospitalization)
  Sender: FDA-Public Use
  Company Number: FR-009507513-1701FRA001388

PATIENT
  Age: 86 Year
  Sex: Female

DRUGS (1)
  1. KEYTRUDA [Suspect]
     Active Substance: PEMBROLIZUMAB
     Indication: MALIGNANT MELANOMA
     Dosage: 80 MG, UNK
     Route: 042
     Dates: start: 20160205, end: 20160429

REACTIONS (13)
  - Subileus [Recovered/Resolved]
  - Nausea [Recovered/Resolved]
  - Food intolerance [Recovered/Resolved]
  - Vestibular neuronitis [Recovered/Resolved]
  - Hyponatraemia [Recovered/Resolved]
  - Gastritis [Recovered/Resolved]
  - Asthenia [Recovering/Resolving]
  - Hypokalaemia [Recovered/Resolved]
  - Vomiting [Recovered/Resolved]
  - Colitis [Recovered/Resolved]
  - Dyspepsia [Unknown]
  - Balance disorder [Recovered/Resolved]
  - Vertigo [Recovered/Resolved]

NARRATIVE: CASE EVENT DATE: 2016
